FAERS Safety Report 9909251 (Version 2)
Quarter: 2014Q1

REPORT INFORMATION
  Report Type: Spontaneous
  Country: US (occurrence: US)
  Receive Date: 20140219
  Receipt Date: 20140227
  Transmission Date: 20141002
  Serious: Yes (Other)
  Sender: FDA-Public Use
  Company Number: US-IAC JAPAN XML-USA-2014-0111252

PATIENT
  Age: 62 Year
  Sex: Male

DRUGS (6)
  1. BUTRANS [Suspect]
     Indication: KNEE ARTHROPLASTY
     Dosage: 10 MCG/HR, WEEKLY
     Route: 062
     Dates: start: 201108, end: 201109
  2. BUTRANS [Suspect]
     Indication: PAIN
  3. OXYCONTIN (NDA 22-272) [Concomitant]
     Indication: PAIN
     Dosage: 20 MG, QID
     Route: 048
  4. OXYCODONE HYDROCHLORIDE (SIMILAR TO NDA 22-272) [Concomitant]
     Indication: BREAKTHROUGH PAIN
     Dosage: 15 MG, QID
     Route: 048
  5. PREDNISONE [Concomitant]
     Indication: PRODUCT USED FOR UNKNOWN INDICATION
     Dosage: 5 MG, DAILY
     Route: 048
  6. CANNABIS [Concomitant]
     Indication: PAIN
     Dosage: UNK

REACTIONS (1)
  - Polyarthritis [Unknown]
